FAERS Safety Report 17251178 (Version 1)
Quarter: 2020Q1

REPORT INFORMATION
  Report Type: Spontaneous
  Country: DK (occurrence: DK)
  Receive Date: 20200109
  Receipt Date: 20200109
  Transmission Date: 20200409
  Serious: Yes (Hospitalization)
  Sender: FDA-Public Use
  Company Number: DK-TEVA-2020-DK-1163997

PATIENT
  Age: 86 Year
  Sex: Female

DRUGS (6)
  1. SPIRIVA [Concomitant]
     Active Substance: TIOTROPIUM BROMIDE MONOHYDRATE
     Indication: CHRONIC OBSTRUCTIVE PULMONARY DISEASE
     Dosage: STRENGTH: 18 MICROGRAMS
     Route: 055
     Dates: start: 201911
  2. ARICEPT [Concomitant]
     Active Substance: DONEPEZIL HYDROCHLORIDE
     Indication: DEMENTIA ALZHEIMER^S TYPE
     Dosage: STRENGTH: 10 MG.
     Route: 048
     Dates: start: 20190529
  3. CLOPIDOGREL ^MYLAN^ [Concomitant]
     Indication: THROMBOSIS PROPHYLAXIS
     Dosage: STRENGTHEN: 75 MG.
     Route: 048
     Dates: start: 20190529
  4. PANODIL [Concomitant]
     Active Substance: ACETAMINOPHEN
     Indication: PAIN
     Dosage: STRENGTHEN: 500 MG.
     Route: 048
     Dates: start: 201911
  5. MEMANTINE ^RATIOPHARM^ [Suspect]
     Active Substance: MEMANTINE
     Indication: DEMENTIA ALZHEIMER^S TYPE
     Dosage: STRENGTH: 10MG
     Route: 048
     Dates: start: 201911, end: 20191204
  6. BUVENTOL EASYHALER [Concomitant]
     Active Substance: ALBUTEROL SULFATE
     Indication: CHRONIC OBSTRUCTIVE PULMONARY DISEASE
     Dosage: DOSE: VARYING. STRENGTH: 4.5 + 160 MICROGRAMS/DOSE AND 200 MICROGRAMS/DOSE
     Route: 055
     Dates: start: 20180419

REACTIONS (6)
  - Fatigue [Not Recovered/Not Resolved]
  - Syncope [Recovered/Resolved]
  - Headache [Unknown]
  - General physical health deterioration [Not Recovered/Not Resolved]
  - Dehydration [Recovered/Resolved]
  - Dizziness [Recovered/Resolved]

NARRATIVE: CASE EVENT DATE: 201911
